FAERS Safety Report 10203508 (Version 2)
Quarter: 2014Q3

REPORT INFORMATION
  Report Type: Spontaneous
  Country: US (occurrence: None)
  Receive Date: 20140523
  Receipt Date: 20140804
  Transmission Date: 20150326
  Serious: Yes (Other)
  Sender: FDA-Public Use
  Company Number: 2014-US-006312

PATIENT
  Age: 32 Year
  Sex: Female
  Weight: 63.5 kg

DRUGS (1)
  1. XYREM [Suspect]
     Active Substance: SODIUM OXYBATE
     Indication: NARCOLEPSY
     Dosage: DOSE ADJUSTMENTS ORAL
     Route: 048
     Dates: start: 200709, end: 2007

REACTIONS (3)
  - Autonomic nervous system imbalance [None]
  - Loss of consciousness [None]
  - Fall [None]

NARRATIVE: CASE EVENT DATE: 201402
